FAERS Safety Report 9174859 (Version 1)
Quarter: 2013Q1

REPORT INFORMATION
  Report Type: Spontaneous
  Country: FR (occurrence: FR)
  Receive Date: 20130320
  Receipt Date: 20130320
  Transmission Date: 20140127
  Serious: Yes (Hospitalization)
  Sender: FDA-Public Use
  Company Number: FR-ASTRAZENECA-2013SE16516

PATIENT
  Age: 29054 Day
  Sex: Female

DRUGS (7)
  1. ZESTRIL [Suspect]
     Dosage: 5 MG DAILY, LONG LASTING TREATMENT
     Route: 048
  2. TERALITHE [Interacting]
     Indication: MAJOR DEPRESSION
     Dosage: 600 MG DAILY, LONG LASTING TREATMENT
     Route: 048
     Dates: end: 20120527
  3. PRAVASTATINE [Concomitant]
     Dosage: 10 MG DAILY, LONG LASTING TREATMENT
     Route: 048
  4. LANSOPRAZOLE [Concomitant]
     Dosage: 15 MG DAILY, LONG LASTING TREATMENT
     Route: 048
  5. SPAGULAX [Concomitant]
     Dosage: 2 DF DAILY, LONG LASTING TREATMENT
     Route: 048
  6. METEOSPASMYL [Concomitant]
     Dosage: 1 DF THREE TIMES A DAY, LONG LASTING TREATMENT
     Route: 048
  7. CALCIDOSE VITAMINE D [Concomitant]
     Dosage: 1 DF TWO TIMES A DAY, LONG LASTING TREATMENT
     Route: 048

REACTIONS (4)
  - Drug interaction [Unknown]
  - Overdose [Recovered/Resolved]
  - Sinus bradycardia [Recovering/Resolving]
  - Renal failure acute [Recovered/Resolved]
